FAERS Safety Report 11395419 (Version 1)
Quarter: 2015Q3

REPORT INFORMATION
  Report Type: Spontaneous
  Country: IT (occurrence: IT)
  Receive Date: 20150819
  Receipt Date: 20150819
  Transmission Date: 20151125
  Serious: Yes (Other)
  Sender: FDA-Public Use
  Company Number: IT-HOSPIRA-2052391

PATIENT
  Sex: Male

DRUGS (4)
  1. VINCRISTINE [Concomitant]
     Active Substance: VINCRISTINE
     Indication: GLIOMA
     Dosage: NOT REPORTED
  2. ETOPOSIDE. [Concomitant]
     Active Substance: ETOPOSIDE
     Indication: GLIOMA
     Dosage: NOT REPORTED
  3. CARBOPLATIN. [Suspect]
     Active Substance: CARBOPLATIN
     Indication: DIABETES INSIPIDUS
  4. DESMOPRESSIN [Concomitant]
     Active Substance: DESMOPRESSIN
     Indication: DIABETES INSIPIDUS
     Dosage: NOT REPORTED

REACTIONS (2)
  - Haematotoxicity [Unknown]
  - Ileus paralytic [Unknown]
